FAERS Safety Report 10900414 (Version 1)
Quarter: 2015Q1

REPORT INFORMATION
  Report Type: Spontaneous
  Country: FR (occurrence: None)
  Receive Date: 20150303
  Receipt Date: 20150303
  Transmission Date: 20150721
  Serious: Yes (Life-Threatening)
  Sender: FDA-Public Use
  Company Number: 2766346

PATIENT
  Age: 69 Year
  Sex: Male

DRUGS (3)
  1. MIDAZOLAM [Concomitant]
     Active Substance: MIDAZOLAM\MIDAZOLAM HYDROCHLORIDE
  2. SUFENTANIL [Concomitant]
     Active Substance: SUFENTANIL
  3. DEXMEDETOMIDINE HYDROCHLORIDE. [Suspect]
     Active Substance: DEXMEDETOMIDINE HYDROCHLORIDE
     Indication: ANALGESIC THERAPY
     Dosage: 07:00 AM - 10:00 AM 3 HOURS
     Route: 042
     Dates: start: 20141129, end: 20141129

REACTIONS (5)
  - Hypersensitivity vasculitis [None]
  - Cardiac arrest [None]
  - Hypertension [None]
  - Agitation [None]
  - Bradycardia [None]

NARRATIVE: CASE EVENT DATE: 20141129
